FAERS Safety Report 7394761-X (Version None)
Quarter: 2011Q2

REPORT INFORMATION
  Report Type: 
  Country: None (occurrence: None)
  Receive Date: 20110405
  Receipt Date: 20110331
  Transmission Date: 20111010
  Serious: Yes (Hospitalization)
  Sender: FDA-Public Use
  Company Number: FR-SANOFI-AVENTIS-2011SA019589

PATIENT
  Age: 47 Year
  Sex: Female

DRUGS (5)
  1. CYCLOPHOSPHAMIDE [Concomitant]
     Indication: BREAST CANCER
     Dates: start: 20101214, end: 20110125
  2. TAXOTERE [Suspect]
     Indication: BREAST CANCER
     Dates: start: 20110215, end: 20110215
  3. TAXOTERE [Suspect]
     Dates: start: 20110308, end: 20110308
  4. EPIRUBICINE [Concomitant]
     Indication: BREAST CANCER
     Dates: start: 20101214, end: 20110125
  5. FLUOROURACIL [Concomitant]
     Indication: BREAST CANCER
     Dates: start: 20101214, end: 20110125

REACTIONS (4)
  - DIARRHOEA [None]
  - PHARYNGEAL INFLAMMATION [None]
  - NEUTROPENIA [None]
  - HAEMORRHOIDS [None]
